FAERS Safety Report 7546805-X (Version None)
Quarter: 2011Q2

REPORT INFORMATION
  Report Type: 
  Country: None (occurrence: None)
  Receive Date: 20110607
  Receipt Date: 20110531
  Transmission Date: 20111010
  Serious: Yes (Hospitalization)
  Sender: FDA-Public Use
  Company Number: 935713

PATIENT

DRUGS (1)
  1. MORPHINE SULFATE [Suspect]
     Indication: PRODUCT USED FOR UNKNOWN INDICATION
     Dosage: 30 MG MILLIGRAM(S), INTRAVENOUS
     Route: 042
     Dates: start: 20110201

REACTIONS (2)
  - SEDATION [None]
  - ACCIDENTAL OVERDOSE [None]
